FAERS Safety Report 6505868-0 (Version None)
Quarter: 2009Q4

REPORT INFORMATION
  Report Type: 
  Country: None (occurrence: None)
  Receive Date: 20091218
  Receipt Date: 20091209
  Transmission Date: 20100525
  Serious: Yes (Other)
  Sender: FDA-Public Use
  Company Number: AT-ROCHE-668335

PATIENT
  Sex: Female

DRUGS (2)
  1. TRASTUZUMAB [Suspect]
     Indication: BREAST CANCER
     Dosage: LOADING DOSE.
     Route: 042
     Dates: start: 20060414, end: 20060414
  2. TRASTUZUMAB [Suspect]
     Dosage: MAINTENANCE DOSE
     Route: 042
     Dates: start: 20060505, end: 20070405

REACTIONS (1)
  - ABORTION SPONTANEOUS [None]
